FAERS Safety Report 17123016 (Version 1)
Quarter: 2019Q4

REPORT INFORMATION
  Report Type: Spontaneous
  Country: US (occurrence: US)
  Receive Date: 20191203
  Receipt Date: 20191203
  Transmission Date: 20200122
  Serious: No
  Sender: FDA-Public Use
  Company Number: None

PATIENT
  Age: 14 Year
  Sex: Male
  Weight: 49.5 kg

DRUGS (1)
  1. ORAJEL FOR COLD SORES SINGLE DOSE [Suspect]
     Active Substance: BENZALKONIUM CHLORIDE\BENZOCAINE
     Indication: ORAL HERPES
     Dosage: ?          QUANTITY:1 VIAL;OTHER ROUTE:ON COLD SORE IN MOUTH?
     Dates: start: 20191203, end: 20191203

REACTIONS (1)
  - Product dispensing error [None]

NARRATIVE: CASE EVENT DATE: 20191203
